FAERS Safety Report 25046715 (Version 2)
Quarter: 2025Q3

REPORT INFORMATION
  Report Type: Report from Study
  Country: CA (occurrence: CA)
  Receive Date: 20250306
  Receipt Date: 20250901
  Transmission Date: 20251021
  Serious: Yes (Other)
  Sender: TAKEDA
  Company Number: CA-TAKEDA-2018TUS027047

PATIENT
  Age: 50 Year
  Sex: Female

DRUGS (25)
  1. VEDOLIZUMAB [Suspect]
     Active Substance: VEDOLIZUMAB
     Indication: Colitis ulcerative
  2. VEDOLIZUMAB [Suspect]
     Active Substance: VEDOLIZUMAB
  3. VEDOLIZUMAB [Suspect]
     Active Substance: VEDOLIZUMAB
  4. VEDOLIZUMAB [Suspect]
     Active Substance: VEDOLIZUMAB
  5. VEDOLIZUMAB [Suspect]
     Active Substance: VEDOLIZUMAB
  6. VEDOLIZUMAB [Suspect]
     Active Substance: VEDOLIZUMAB
  7. VEDOLIZUMAB [Suspect]
     Active Substance: VEDOLIZUMAB
  8. VEDOLIZUMAB [Suspect]
     Active Substance: VEDOLIZUMAB
  9. VEDOLIZUMAB [Suspect]
     Active Substance: VEDOLIZUMAB
  10. VEDOLIZUMAB [Suspect]
     Active Substance: VEDOLIZUMAB
  11. VEDOLIZUMAB [Suspect]
     Active Substance: VEDOLIZUMAB
  12. VEDOLIZUMAB [Suspect]
     Active Substance: VEDOLIZUMAB
  13. VEDOLIZUMAB [Suspect]
     Active Substance: VEDOLIZUMAB
  14. VEDOLIZUMAB [Suspect]
     Active Substance: VEDOLIZUMAB
  15. VEDOLIZUMAB [Suspect]
     Active Substance: VEDOLIZUMAB
  16. VEDOLIZUMAB [Suspect]
     Active Substance: VEDOLIZUMAB
  17. VEDOLIZUMAB [Suspect]
     Active Substance: VEDOLIZUMAB
  18. ASACOL [Concomitant]
     Active Substance: MESALAMINE
  19. ELAVIL [Concomitant]
     Active Substance: AMITRIPTYLINE HYDROCHLORIDE
  20. GABAPENTIN [Concomitant]
     Active Substance: GABAPENTIN
  21. VITAMIN B12 [Concomitant]
     Active Substance: CYANOCOBALAMIN
  22. VITAMIN D [Concomitant]
     Active Substance: VITAMIN D NOS
  23. OMEGA 3 [Concomitant]
     Active Substance: CAPSAICIN
  24. Salofalk [Concomitant]
  25. Primrose oil [Concomitant]

REACTIONS (9)
  - Colitis ulcerative [Not Recovered/Not Resolved]
  - Oral herpes [Unknown]
  - Insomnia [Not Recovered/Not Resolved]
  - Tenosynovitis stenosans [Not Recovered/Not Resolved]
  - Abdominal pain lower [Not Recovered/Not Resolved]
  - Stress [Unknown]
  - Pain in jaw [Unknown]
  - Abdominal pain [Recovered/Resolved]
  - Oropharyngeal pain [Not Recovered/Not Resolved]

NARRATIVE: CASE EVENT DATE: 20180824
